FAERS Safety Report 9986053 (Version 1)
Quarter: 2014Q1

REPORT INFORMATION
  Report Type: Spontaneous
  Country: US (occurrence: US)
  Receive Date: 20140307
  Receipt Date: 20140307
  Transmission Date: 20141002
  Serious: No
  Sender: FDA-Public Use
  Company Number: US-ABBVIE-13P-163-1091326-00

PATIENT
  Sex: Male

DRUGS (2)
  1. HUMIRA [Suspect]
     Indication: PRODUCT USED FOR UNKNOWN INDICATION
     Route: 058
  2. METHOTREXATE [Concomitant]

REACTIONS (10)
  - Pain [Unknown]
  - Joint swelling [Unknown]
  - Joint warmth [Unknown]
  - Gait disturbance [Unknown]
  - Loss of consciousness [Unknown]
  - Insomnia [Unknown]
  - Peripheral coldness [Unknown]
  - Cold sweat [Unknown]
  - Inflammation [Unknown]
  - Cyanosis [Unknown]
